FAERS Safety Report 20120850 (Version 2)
Quarter: 2021Q4

REPORT INFORMATION
  Report Type: Report from Study
  Country: BR (occurrence: BR)
  Receive Date: 20211127
  Receipt Date: 20211231
  Transmission Date: 20220303
  Serious: Yes (Other)
  Sender: FDA-Public Use
  Company Number: BR-ABBVIE-21K-020-4175991-00

PATIENT
  Sex: Male
  Weight: 76 kg

DRUGS (1)
  1. RINVOQ [Suspect]
     Active Substance: UPADACITINIB
     Indication: Rheumatoid arthritis
     Route: 048
     Dates: start: 202106

REACTIONS (9)
  - Bedridden [Recovering/Resolving]
  - Pain [Recovered/Resolved]
  - Drug ineffective [Unknown]
  - Muscular weakness [Recovered/Resolved]
  - Musculoskeletal stiffness [Recovered/Resolved]
  - Hypersensitivity [Recovered/Resolved]
  - Mass [Recovered/Resolved]
  - Pruritus [Recovered/Resolved]
  - Gait disturbance [Not Recovered/Not Resolved]

NARRATIVE: CASE EVENT DATE: 20210101
